FAERS Safety Report 5007915-4 (Version None)
Quarter: 2006Q2

REPORT INFORMATION
  Report Type: 
  Country: None (occurrence: None)
  Receive Date: 20060518
  Receipt Date: 20060510
  Transmission Date: 20061013
  Serious: Yes (Death, Other)
  Sender: FDA-Public Use
  Company Number: JP200604001823

PATIENT
  Age: 24 Year
  Sex: Male

DRUGS (2)
  1. ZYPREXA [Suspect]
     Indication: SCHIZOPHRENIA
     Dosage: 20 MG, DAILY (1/D), ORAL
     Route: 048
     Dates: end: 20060401
  2. AKINETON [Concomitant]

REACTIONS (4)
  - CERVICAL VERTEBRAL FRACTURE [None]
  - COMPLETED SUICIDE [None]
  - HALLUCINATION, AUDITORY [None]
  - SUICIDE ATTEMPT [None]
